FAERS Safety Report 4968526-X (Version None)
Quarter: 2006Q2

REPORT INFORMATION
  Report Type: 
  Country: None (occurrence: None)
  Receive Date: 20060410
  Receipt Date: 20060403
  Transmission Date: 20061013
  Serious: Yes (Other)
  Sender: FDA-Public Use
  Company Number: US-AVENTIS-200613164US

PATIENT
  Sex: Female
  Weight: 10 kg

DRUGS (2)
  1. LOVENOX [Suspect]
     Dosage: DOSE: UNK
     Route: 064
  2. LOVENOX [Suspect]
     Dosage: DOSE: UNK
     Route: 063

REACTIONS (5)
  - DRUG EXPOSURE DURING PREGNANCY [None]
  - HEAD TITUBATION [None]
  - HYPERAESTHESIA [None]
  - HYPERTONIA [None]
  - SENSORY DISTURBANCE [None]
